FAERS Safety Report 12617777 (Version 1)
Quarter: 2016Q3

REPORT INFORMATION
  Report Type: Spontaneous
  Country: US (occurrence: None)
  Receive Date: 20160802
  Receipt Date: 20160802
  Transmission Date: 20161109
  Serious: No
  Sender: FDA-Public Use
  Company Number: None

PATIENT
  Age: 38 Year
  Sex: Female
  Weight: 181.44 kg

DRUGS (5)
  1. METFORMIN [Concomitant]
     Active Substance: METFORMIN HYDROCHLORIDE
  2. MULTI-VITAMIN [Concomitant]
     Active Substance: .ALPHA.-TOCOPHEROL ACETATE, DL-\ASCORBIC ACID\CYANOCOBALAMIN\FLUORIDE ION\FOLIC ACID\NIACIN\PYRIDOXINE\RIBOFLAVIN\THIAMINE\VITAMIN A\VITAMIN D
  3. MIRENA [Suspect]
     Active Substance: LEVONORGESTREL
     Dates: start: 20091102
  4. ALEVE [Concomitant]
     Active Substance: NAPROXEN SODIUM
  5. LISINORPIL-HCTZ [Concomitant]

REACTIONS (8)
  - Muscular weakness [None]
  - Alopecia [None]
  - Hypoaesthesia [None]
  - Back pain [None]
  - Weight increased [None]
  - Pain [None]
  - Abdominal distension [None]
  - Swelling [None]

NARRATIVE: CASE EVENT DATE: 20160601
